FAERS Safety Report 19200525 (Version 1)
Quarter: 2021Q2

REPORT INFORMATION
  Report Type: Spontaneous
  Country: US (occurrence: US)
  Receive Date: 20210430
  Receipt Date: 20210430
  Transmission Date: 20210717
  Serious: Yes (Life-Threatening, Hospitalization)
  Sender: FDA-Public Use
  Company Number: US-MYLANLABS-2021M1025243

PATIENT
  Age: 14 Year
  Sex: Female

DRUGS (3)
  1. LORAZEPAM. [Suspect]
     Active Substance: LORAZEPAM
     Indication: ANTICHOLINERGIC SYNDROME
     Dosage: 10 MILLIGRAM BEFORE ADMISSION
     Route: 065
  2. LORAZEPAM. [Suspect]
     Active Substance: LORAZEPAM
     Dosage: 6 MILLIGRAM IN THE EMERGENCY DEPARTMENT
     Route: 065
  3. DIPHENHYDRAMINE. [Suspect]
     Active Substance: DIPHENHYDRAMINE
     Indication: PRODUCT USED FOR UNKNOWN INDICATION
     Dosage: PATIENT INGESTED 100 TABLETS OF DIPHENHYDRAMINE
     Route: 048

REACTIONS (4)
  - Overdose [Recovered/Resolved]
  - Anticholinergic syndrome [Recovered/Resolved]
  - Off label use [Unknown]
  - Drug ineffective for unapproved indication [Unknown]
